FAERS Safety Report 9383327 (Version 3)
Quarter: 2013Q3

REPORT INFORMATION
  Report Type: Spontaneous
  Country: US (occurrence: US)
  Receive Date: 20130704
  Receipt Date: 20130826
  Transmission Date: 20140515
  Serious: No
  Sender: FDA-Public Use
  Company Number: US-009507513-1306USA010757

PATIENT
  Age: 61 Year
  Sex: Female
  Weight: 109.75 kg

DRUGS (3)
  1. ASMANEX TWISTHALER [Suspect]
     Indication: ASTHMA
     Dosage: 200 MCG/1 PUFF, BID
     Route: 055
     Dates: start: 201301
  2. VENTOLIN (ALBUTEROL SULFATE) [Concomitant]
     Dosage: UNK
  3. CLARITHROMYCIN [Concomitant]
     Dosage: UNK

REACTIONS (3)
  - Asthma [Not Recovered/Not Resolved]
  - Drug dose omission [Unknown]
  - Product quality issue [Unknown]
